FAERS Safety Report 11835435 (Version 1)
Quarter: 2015Q4

REPORT INFORMATION
  Report Type: Spontaneous
  Country: US (occurrence: None)
  Receive Date: 20151214
  Receipt Date: 20151214
  Transmission Date: 20160305
  Serious: Yes (Life-Threatening, Hospitalization)
  Sender: FDA-Public Use
  Company Number: None

PATIENT
  Age: 58 Year
  Sex: Female
  Weight: 54.43 kg

DRUGS (14)
  1. SPIRONLACTONE [Concomitant]
  2. LASIX [Concomitant]
     Active Substance: FUROSEMIDE
  3. TYLENOL [Concomitant]
     Active Substance: ACETAMINOPHEN
  4. CARVEDILOL. [Concomitant]
     Active Substance: CARVEDILOL
  5. COLACE [Concomitant]
     Active Substance: DOCUSATE SODIUM
  6. XARELTO [Suspect]
     Active Substance: RIVAROXABAN
     Indication: EJECTION FRACTION DECREASED
     Route: 048
     Dates: start: 20141208, end: 20151107
  7. CALCIUM [Concomitant]
     Active Substance: CALCIUM
  8. VITAMIN D [Concomitant]
     Active Substance: CHOLECALCIFEROL
  9. XARELTO [Suspect]
     Active Substance: RIVAROXABAN
     Indication: ATRIAL FIBRILLATION
     Route: 048
     Dates: start: 20141208, end: 20151107
  10. LISINOPRIL. [Concomitant]
     Active Substance: LISINOPRIL
  11. METAXALONE. [Concomitant]
     Active Substance: METAXALONE
  12. CLONAZEPAM. [Concomitant]
     Active Substance: CLONAZEPAM
  13. MULTIVITAMIN [Concomitant]
     Active Substance: VITAMINS
  14. FIBER SUPPLEMENT [Concomitant]

REACTIONS (2)
  - Appendicectomy [None]
  - Post procedural haemorrhage [None]

NARRATIVE: CASE EVENT DATE: 20151111
